FAERS Safety Report 9779712 (Version 4)
Quarter: 2014Q3

REPORT INFORMATION
  Report Type: Report from Study
  Country: US (occurrence: US)
  Receive Date: 20131223
  Receipt Date: 20140815
  Transmission Date: 20150326
  Serious: Yes (Other)
  Sender: FDA-Public Use
  Company Number: US-GLAXOSMITHKLINE-A1047575A

PATIENT
  Sex: Male

DRUGS (2)
  1. ALBUTEROL. [Suspect]
     Active Substance: ALBUTEROL
     Indication: CHRONIC OBSTRUCTIVE PULMONARY DISEASE
     Route: 055
  2. ADVAIR HFA [Suspect]
     Active Substance: FLUTICASONE PROPIONATE\SALMETEROL XINAFOATE
     Indication: CHRONIC OBSTRUCTIVE PULMONARY DISEASE
     Route: 055

REACTIONS (17)
  - Oxygen saturation decreased [Recovered/Resolved]
  - Product quality issue [Unknown]
  - Visual acuity reduced [Unknown]
  - Infection [Recovered/Resolved]
  - Swelling [Not Recovered/Not Resolved]
  - Neoplasm malignant [Unknown]
  - Radiotherapy [Unknown]
  - Cataract [Unknown]
  - Neoplasm [Unknown]
  - Dyspnoea [Unknown]
  - Diabetes mellitus [Unknown]
  - Tremor [Unknown]
  - Motor dysfunction [Unknown]
  - Recurrent cancer [Unknown]
  - Activities of daily living impaired [Unknown]
  - Abdominal distension [Unknown]
  - Dysstasia [Unknown]
